FAERS Safety Report 4317843-5 (Version None)
Quarter: 2004Q1

REPORT INFORMATION
  Report Type: 
  Country: None (occurrence: None)
  Receive Date: 20040316
  Receipt Date: 20040310
  Transmission Date: 20041129
  Serious: Yes (Hospitalization)
  Sender: FDA-Public Use
  Company Number: 200410957FR

PATIENT
  Age: 68 Year
  Sex: Male

DRUGS (5)
  1. LOVENOX [Suspect]
     Indication: CEREBROVASCULAR ACCIDENT
     Route: 058
     Dates: start: 20040125, end: 20040130
  2. CORDARONE [Suspect]
     Route: 048
     Dates: start: 20040126, end: 20040202
  3. ASPIRIN [Suspect]
     Dosage: DOSE UNIT: UNITS
     Route: 048
     Dates: start: 20040125, end: 20040129
  4. DEROXAT [Suspect]
     Dosage: DOSE UNIT: UNITS
     Route: 048
     Dates: start: 20040126, end: 20040130
  5. PREVISCAN [Concomitant]
     Route: 048

REACTIONS (1)
  - HEPATITIS [None]
